FAERS Safety Report 18402008 (Version 3)
Quarter: 2022Q4

REPORT INFORMATION
  Report Type: Report from Study
  Country: RO (occurrence: RO)
  Receive Date: 20201019
  Receipt Date: 20221103
  Transmission Date: 20230112
  Serious: Yes (Death)
  Sender: FDA-Public Use
  Company Number: None

PATIENT
  Age: 84 Year
  Sex: Male

DRUGS (1)
  1. ENTRESTO [Suspect]
     Active Substance: SACUBITRIL\VALSARTAN
     Indication: Blood pressure abnormal
     Dosage: 1 DF, QD (IN MORNING) (STARTED 2 YEARS AGO)
     Route: 065

REACTIONS (3)
  - Myocardial infarction [Fatal]
  - Inappropriate schedule of product administration [Unknown]
  - Product use in unapproved indication [Unknown]
